FAERS Safety Report 10072223 (Version 3)
Quarter: 2016Q1

REPORT INFORMATION
  Report Type: Report from Study
  Country: BR (occurrence: BR)
  Receive Date: 20140411
  Receipt Date: 20160329
  Transmission Date: 20160525
  Serious: Yes (Other)
  Sender: FDA-Public Use
  Company Number: PHHY2014BR043420

PATIENT
  Age: 84 Year
  Sex: Female
  Weight: 95 kg

DRUGS (7)
  1. ATENSINA [Suspect]
     Active Substance: CLONIDINE
     Indication: HYPERTENSION
     Dosage: 1 DF, (0.1 UNIT UNSPECIFIED)
     Route: 048
  2. EUTHYROX [Concomitant]
     Active Substance: LEVOTHYROXINE SODIUM
     Indication: HYPOTHYROIDISM
     Dosage: 1 DF, QD
     Route: 048
  3. ALDACTONE [Concomitant]
     Active Substance: SPIRONOLACTONE
     Indication: HYPERTENSION
     Dosage: 1 DF, QD (10 YEARS AGO)
     Route: 048
  4. RIVOTRIL [Concomitant]
     Active Substance: CLONAZEPAM
     Indication: ANXIETY
     Dosage: 1 DF, QD (10 YEARS AGO)
     Route: 048
  5. DIOVAN [Suspect]
     Active Substance: VALSARTAN
     Indication: HYPERTENSION
     Dosage: 1 DF, QD (160 MG) (10 YEARS AGO)
     Route: 048
  6. BETAHISTINE HYDROCHLORIDE [Concomitant]
     Active Substance: BETAHISTINE HYDROCHLORIDE
     Indication: LABYRINTHITIS
     Dosage: (12 TO 12 HOURS)
     Route: 065
  7. LABIRIN [Concomitant]
     Active Substance: BETAHISTINE
     Indication: LABYRINTHITIS
     Dosage: 1 DF, QD (MANY YEARS AGO)
     Route: 048

REACTIONS (13)
  - Deafness unilateral [Not Recovered/Not Resolved]
  - Dizziness [Recovering/Resolving]
  - Balance disorder [Recovering/Resolving]
  - Vomiting [Recovering/Resolving]
  - Memory impairment [Recovering/Resolving]
  - Breast cancer [Recovering/Resolving]
  - Movement disorder [Recovering/Resolving]
  - Nervous system disorder [Recovering/Resolving]
  - Muscle spasms [Recovering/Resolving]
  - Muscular weakness [Not Recovered/Not Resolved]
  - Limb discomfort [Recovering/Resolving]
  - Asthenia [Not Recovered/Not Resolved]
  - Neuropathy peripheral [Not Recovered/Not Resolved]

NARRATIVE: CASE EVENT DATE: 201305
